FAERS Safety Report 12188739 (Version 4)
Quarter: 2017Q2

REPORT INFORMATION
  Report Type: Report from Study
  Country: US (occurrence: US)
  Receive Date: 20160317
  Receipt Date: 20170615
  Transmission Date: 20170830
  Serious: Yes (Other)
  Sender: FDA-Public Use
  Company Number: PHHY2016US019346

PATIENT
  Age: 62 Year
  Sex: Female

DRUGS (1)
  1. GILENYA [Suspect]
     Active Substance: FINGOLIMOD HYDROCHLORIDE
     Indication: MULTIPLE SCLEROSIS
     Dosage: QD
     Route: 048

REACTIONS (15)
  - Blood alkaline phosphatase increased [Unknown]
  - Peripheral swelling [Unknown]
  - Muscular weakness [Unknown]
  - Pruritus [Unknown]
  - Quadriparesis [Unknown]
  - Muscle spasticity [Unknown]
  - Weight decreased [Unknown]
  - Occipital neuralgia [Recovered/Resolved]
  - Hypoaesthesia [Unknown]
  - Joint contracture [Unknown]
  - Swelling [Unknown]
  - Depression [Unknown]
  - Fatigue [Unknown]
  - Hallucination [Unknown]
  - Pain [Unknown]

NARRATIVE: CASE EVENT DATE: 20150728
